FAERS Safety Report 13679591 (Version 1)
Quarter: 2017Q2

REPORT INFORMATION
  Report Type: Spontaneous
  Country: US (occurrence: US)
  Receive Date: 20170622
  Receipt Date: 20170622
  Transmission Date: 20170830
  Serious: Yes (Hospitalization)
  Sender: FDA-Public Use
  Company Number: US-B.I. PHARMACEUTICALS,INC./RIDGEFIELD-2017-BI-034063

PATIENT
  Age: 79 Year
  Sex: Female

DRUGS (2)
  1. COMBIVENT [Suspect]
     Active Substance: ALBUTEROL SULFATE\IPRATROPIUM BROMIDE
     Indication: ASTHMA
     Dosage: FORM STRENGTH: 20MCG/100MCG; UNIT DOSE: 40MCG/200MCG; DAILY DOSE: 80MCG/400MCG; ADMINISTRATION CORRE
     Route: 055
     Dates: start: 2011
  2. BIOTIN [Concomitant]
     Active Substance: BIOTIN
     Indication: PRODUCT USED FOR UNKNOWN INDICATION
     Dosage: ONE DAILY;  FORM STRENGTH: 5000U; FORMULATION: TABLET
     Route: 048
     Dates: start: 2015

REACTIONS (6)
  - Lower limb fracture [Not Recovered/Not Resolved]
  - Incorrect dose administered [Not Recovered/Not Resolved]
  - Arthralgia [Recovered/Resolved]
  - Hip deformity [Recovered/Resolved]
  - Off label use [Not Recovered/Not Resolved]
  - Fall [Recovered/Resolved]

NARRATIVE: CASE EVENT DATE: 2011
